FAERS Safety Report 6336349-5 (Version None)
Quarter: 2009Q3

REPORT INFORMATION
  Report Type: 
  Country: None (occurrence: None)
  Receive Date: 20090828
  Receipt Date: 20090818
  Transmission Date: 20100115
  Serious: Yes (Hospitalization)
  Sender: FDA-Public Use
  Company Number: ADR13422009

PATIENT
  Age: 65 Year
  Sex: Female

DRUGS (7)
  1. CITALOPRAM HYDROBROMIDE [Suspect]
     Indication: ANXIETY
     Dosage: 10MG ORAL
     Route: 048
     Dates: start: 20070606, end: 20070608
  2. CITALOPRAM HYDROBROMIDE [Suspect]
     Indication: EMOTIONAL DISORDER
     Dosage: 10MG ORAL
     Route: 048
     Dates: start: 20070606, end: 20070608
  3. AMITRIPTYLINE [Concomitant]
  4. ATENOLOL [Concomitant]
  5. BENDROFLUMETHIAZIDE [Concomitant]
  6. METHOTREXATE [Concomitant]
  7. LANSOPRAZOLE [Concomitant]

REACTIONS (1)
  - DEEP VEIN THROMBOSIS [None]
